FAERS Safety Report 4359539-X (Version None)
Quarter: 2004Q2

REPORT INFORMATION
  Report Type: 
  Country: None (occurrence: None)
  Receive Date: 20040514
  Receipt Date: 20040514
  Transmission Date: 20050107
  Serious: Yes (Hospitalization)
  Sender: FDA-Public Use
  Company Number: None

PATIENT
  Age: 74 Year
  Sex: Male

DRUGS (7)
  1. GLYBURIDE [Suspect]
     Indication: DIABETES MELLITUS NON-INSULIN-DEPENDENT
     Dosage: 5 MG QD
     Dates: start: 20040127
  2. GLYBURIDE [Concomitant]
  3. NIFEDIPINE [Concomitant]
  4. FUROSEMIDE [Concomitant]
  5. ZOCOR [Concomitant]
  6. TERAZOSIN HCL [Concomitant]
  7. KCL TAB [Concomitant]

REACTIONS (1)
  - HYPOGLYCAEMIA [None]
